FAERS Safety Report 5949164-9 (Version None)
Quarter: 2008Q4

REPORT INFORMATION
  Report Type: 
  Country: None (occurrence: None)
  Receive Date: 20081111
  Receipt Date: 20081027
  Transmission Date: 20090506
  Serious: Yes (Other)
  Sender: FDA-Public Use
  Company Number: FR-GENENTECH-271012

PATIENT
  Sex: Male

DRUGS (5)
  1. RITUXIMAB [Suspect]
     Indication: EPSTEIN-BARR VIRUS ASSOCIATED LYMPHOPROLIFERATIVE DISORDER
     Dosage: 375 MG/M2, UNK
     Route: 042
     Dates: start: 20080730
  2. CYCLOPHOSPHAMIDE [Suspect]
     Indication: EPSTEIN-BARR VIRUS ASSOCIATED LYMPHOPROLIFERATIVE DISORDER
     Dosage: 750 MG/M2, UNK
     Route: 042
     Dates: start: 20080926
  3. DOXORUBICIN HCL [Suspect]
     Indication: EPSTEIN-BARR VIRUS ASSOCIATED LYMPHOPROLIFERATIVE DISORDER
     Dosage: 50 MG/M2, UNK
     Route: 042
     Dates: start: 20080926
  4. VINCRISTINE [Suspect]
     Indication: EPSTEIN-BARR VIRUS ASSOCIATED LYMPHOPROLIFERATIVE DISORDER
     Dosage: 1.4 MG/M2, UNK
     Route: 042
     Dates: start: 20080926
  5. PREDNISONE TAB [Suspect]
     Indication: EPSTEIN-BARR VIRUS ASSOCIATED LYMPHOPROLIFERATIVE DISORDER
     Dosage: 100 MG, UNK
     Route: 048
     Dates: start: 20080926, end: 20080930

REACTIONS (2)
  - CONSTIPATION [None]
  - HYPONATRAEMIA [None]
